FAERS Safety Report 8355148-6 (Version None)
Quarter: 2012Q2

REPORT INFORMATION
  Report Type: 
  Country: None (occurrence: None)
  Receive Date: 20120511
  Receipt Date: 20120508
  Transmission Date: 20120825
  Serious: Yes (Other)
  Sender: FDA-Public Use
  Company Number: US-PFIZER INC-2012014381

PATIENT
  Sex: Female
  Weight: 72.562 kg

DRUGS (5)
  1. PRISTIQ [Concomitant]
     Indication: DEPRESSION
     Dosage: UNK
  2. LYRICA [Suspect]
     Indication: FIBROMYALGIA
     Dosage: 75 MG, 3X/DAY
     Route: 048
  3. SYNTHROID [Concomitant]
     Indication: HYPOTHYROIDISM
     Dosage: UNK
  4. TRAMADOL [Concomitant]
     Dosage: 60 MG, UNK
  5. PROZAC [Concomitant]
     Dosage: UNK

REACTIONS (10)
  - FALL [None]
  - PAIN [None]
  - HYPOTENSION [None]
  - DEHYDRATION [None]
  - DIARRHOEA [None]
  - RIB FRACTURE [None]
  - COUGH [None]
  - DYSPNOEA [None]
  - BREAST TENDERNESS [None]
  - MUSCULOSKELETAL PAIN [None]
